FAERS Safety Report 9160470 (Version 1)
Quarter: 2013Q1

REPORT INFORMATION
  Report Type: Spontaneous
  Country: CO (occurrence: CO)
  Receive Date: 20130313
  Receipt Date: 20130313
  Transmission Date: 20140127
  Serious: Yes (Hospitalization)
  Sender: FDA-Public Use
  Company Number: CO-PFIZER INC-2013080678

PATIENT
  Age: 10 Year
  Sex: Male

DRUGS (2)
  1. GENOTROPIN [Suspect]
     Indication: HYPERADRENALISM
     Dosage: 4 MG, 1X/DAY
     Route: 058
     Dates: start: 2009
  2. ASTONIN [Concomitant]
     Indication: HYPERADRENALISM
     Dosage: 0.1 MG, 2X/DAY
     Route: 048

REACTIONS (1)
  - Cellulitis [Not Recovered/Not Resolved]
